FAERS Safety Report 22133905 (Version 1)
Quarter: 2023Q1

REPORT INFORMATION
  Report Type: Spontaneous
  Country: US (occurrence: US)
  Receive Date: 20230324
  Receipt Date: 20230324
  Transmission Date: 20230418
  Serious: No
  Sender: FDA-Public Use
  Company Number: US-TAKEDA-2023TUS030574

PATIENT
  Age: 11 Year
  Sex: Male
  Weight: 30 kg

DRUGS (1)
  1. VYVANSE [Suspect]
     Active Substance: LISDEXAMFETAMINE DIMESYLATE
     Indication: Attention deficit hyperactivity disorder
     Dosage: 40 MILLIGRAM, QD
     Route: 065

REACTIONS (5)
  - Retching [Unknown]
  - Vomiting [Unknown]
  - Product use complaint [Unknown]
  - Product dose omission issue [Unknown]
  - Incorrect dose administered [Unknown]
